FAERS Safety Report 20473572 (Version 3)
Quarter: 2022Q3

REPORT INFORMATION
  Report Type: Spontaneous
  Country: US (occurrence: None)
  Receive Date: 20220215
  Receipt Date: 20220804
  Transmission Date: 20221027
  Serious: Yes (Hospitalization, Other)
  Sender: FDA-Public Use
  Company Number: US-ROCHE-3024432

PATIENT
  Sex: Male
  Weight: 67.13 kg

DRUGS (16)
  1. XOLAIR [Suspect]
     Active Substance: OMALIZUMAB
     Indication: Asthma
     Dosage: INJECT 300 MG/ML
     Route: 058
     Dates: start: 20220208
  2. XOLAIR [Suspect]
     Active Substance: OMALIZUMAB
  3. XOLAIR [Suspect]
     Active Substance: OMALIZUMAB
     Dosage: INJECT 150 MG/ML
     Route: 058
  4. XOLAIR [Suspect]
     Active Substance: OMALIZUMAB
  5. PROAIR HFA [Concomitant]
     Active Substance: ALBUTEROL SULFATE
     Dosage: MCG/ACT INHALATION AEROSOL SOLUTION, QID PM
  6. COUMADIN [Concomitant]
     Active Substance: WARFARIN SODIUM
     Dosage: ONE TABLET DAILY
     Route: 048
  7. EPIPEN [Concomitant]
     Active Substance: EPINEPHRINE
     Dosage: ADMINISTER INTRAMUSCULARLY 0.3 MG/0.3 ML INJECTION SOLUTION AUTO INJECTOR ONE TIME
     Route: 030
  8. EPIPEN [Concomitant]
     Active Substance: EPINEPHRINE
     Dosage: INJECT SUBCUTANEOUSLY AS NEEDED IN SEVERE ALLERGIC REACTION
     Route: 058
  9. ADVAIR DISKUS [Concomitant]
     Active Substance: FLUTICASONE PROPIONATE\SALMETEROL XINAFOATE
     Dosage: 500-50 MCG/DOSE (1 PUFF INHALED ORRALY 2 TIMES  PER DAY)
  10. ALBUTEROL\IPRATROPIUM [Concomitant]
     Active Substance: ALBUTEROL\IPRATROPIUM
     Dosage: 0.5-2.5 MG/3ML INHALATION SOLUTION 3ML VIA NEBULIZER EVERY 6 HOURS AS NEEDED
  11. KEPPRA [Concomitant]
     Active Substance: LEVETIRACETAM
     Dosage: TAKE HALF OF TABLET 500 MG BY MOUTH EVERY 12 HOURS
     Route: 048
  12. REMERON [Concomitant]
     Active Substance: MIRTAZAPINE
     Dosage: TAKE 1 TABLET 15 MG BY MOUTH DAILY AT BEDTIME
     Route: 048
  13. SINGULAIR [Concomitant]
     Active Substance: MONTELUKAST SODIUM
     Dosage: TAKE 1 TABLET 10 MG BY MOUTH QHS
     Route: 048
  14. PERCOCET [Concomitant]
     Active Substance: ACETAMINOPHEN\OXYCODONE HYDROCHLORIDE
     Dosage: 5-325 MG SUBCUTANEOUS  4 HOURS PM
     Route: 048
  15. SPIRIVA [Concomitant]
     Active Substance: TIOTROPIUM BROMIDE MONOHYDRATE
     Dosage: 18 MCG INHALATION CAPSULE DAILY
  16. VITAMIN B12 [Concomitant]
     Active Substance: CYANOCOBALAMIN
     Dosage: 1000 MCG/ML INJECTABLE SOLUTION EVERY MONTH

REACTIONS (9)
  - Asthma [Unknown]
  - Chronic obstructive pulmonary disease [Unknown]
  - Pneumonia [Unknown]
  - Abnormal loss of weight [Unknown]
  - Hypogammaglobulinaemia [Unknown]
  - Dyspnoea [Unknown]
  - Pain [Unknown]
  - Anxiety [Unknown]
  - Off label use [Unknown]
